FAERS Safety Report 9050286 (Version 1)
Quarter: 2013Q1

REPORT INFORMATION
  Report Type: Spontaneous
  Country: BR (occurrence: BR)
  Receive Date: 20130205
  Receipt Date: 20130205
  Transmission Date: 20140127
  Serious: Yes (Other)
  Sender: FDA-Public Use
  Company Number: PHHY2012BR066060

PATIENT
  Sex: Female

DRUGS (1)
  1. RITALIN LA [Suspect]
     Indication: TENSION
     Dosage: 1 DF, QD
     Route: 048

REACTIONS (2)
  - Fibromyalgia [Recovered/Resolved]
  - Drug ineffective [Unknown]
